FAERS Safety Report 8988740 (Version 2)
Quarter: 2013Q1

REPORT INFORMATION
  Report Type: Spontaneous
  Country: AU (occurrence: AU)
  Receive Date: 20121228
  Receipt Date: 20130205
  Transmission Date: 20140127
  Serious: Yes (Other)
  Sender: FDA-Public Use
  Company Number: AU-BRISTOL-MYERS SQUIBB COMPANY-17227612

PATIENT
  Age: 45 Year
  Sex: Male
  Weight: 83 kg

DRUGS (2)
  1. EFAVIRENZ CAPS [Suspect]
     Indication: HIV INFECTION
     Route: 048
  2. KIVEXA [Suspect]
     Dosage: TAB

REACTIONS (1)
  - Deep vein thrombosis [Unknown]
